FAERS Safety Report 12010870 (Version 1)
Quarter: 2016Q1

REPORT INFORMATION
  Report Type: Spontaneous
  Country: CA (occurrence: CA)
  Receive Date: 20160205
  Receipt Date: 20160205
  Transmission Date: 20160526
  Serious: Yes (Hospitalization)
  Sender: FDA-Public Use
  Company Number: CA-ACTELION-A-US2016-130851

PATIENT
  Age: 58 Year
  Sex: Female

DRUGS (15)
  1. AMITRIPTYLINE [Concomitant]
     Active Substance: AMITRIPTYLINE
  2. PANTOPRAZOLE [Concomitant]
     Active Substance: PANTOPRAZOLE SODIUM
  3. AMIODARONE [Concomitant]
     Active Substance: AMIODARONE
  4. MAGNESIUM OXIDE. [Concomitant]
     Active Substance: MAGNESIUM OXIDE
  5. REVATIO [Concomitant]
     Active Substance: SILDENAFIL CITRATE
  6. LEVOTHYROXINE. [Concomitant]
     Active Substance: LEVOTHYROXINE
  7. WARFARIN [Concomitant]
     Active Substance: WARFARIN
  8. DOCUSATE [Concomitant]
     Active Substance: DOCUSATE
  9. SPIRONOLACTONE. [Concomitant]
     Active Substance: SPIRONOLACTONE
  10. LASIX [Concomitant]
     Active Substance: FUROSEMIDE
  11. METOCLOPRAMIDE. [Concomitant]
     Active Substance: METOCLOPRAMIDE
  12. OXYCODONE [Concomitant]
     Active Substance: OXYCODONE
  13. MELATONIN [Concomitant]
     Active Substance: MELATONIN
  14. METOLAZONE. [Concomitant]
     Active Substance: METOLAZONE
  15. CARIPUL [Suspect]
     Active Substance: EPOPROSTENOL
     Indication: PULMONARY ARTERIAL HYPERTENSION
     Dosage: UNK
     Route: 042
     Dates: start: 20140709

REACTIONS (1)
  - Cardiac disorder [Not Recovered/Not Resolved]
